FAERS Safety Report 19871026 (Version 2)
Quarter: 2022Q4

REPORT INFORMATION
  Report Type: Report from Study
  Country: DE (occurrence: DE)
  Receive Date: 20210923
  Receipt Date: 20221028
  Transmission Date: 20230113
  Serious: Yes (Other)
  Sender: FDA-Public Use
  Company Number: DE-TEVA-2021-DE-1956638

PATIENT
  Age: 38 Year
  Sex: Female
  Weight: 72 kg

DRUGS (1)
  1. AJOVY [Suspect]
     Active Substance: FREMANEZUMAB-VFRM
     Indication: Migraine prophylaxis
     Dosage: LAST DOSE BEFORE AE ONSET: 09-FEB-2021
     Route: 058
     Dates: start: 20200825, end: 20210209

REACTIONS (1)
  - Deafness bilateral [Recovered/Resolved]

NARRATIVE: CASE EVENT DATE: 20210315
